FAERS Safety Report 6495483-X (Version None)
Quarter: 2009Q4

REPORT INFORMATION
  Report Type: 
  Country: None (occurrence: None)
  Receive Date: 20091214
  Receipt Date: 20090708
  Transmission Date: 20100525
  Serious: No
  Sender: FDA-Public Use
  Company Number: US-BRISTOL-MYERS SQUIBB COMPANY-14684708

PATIENT
  Age: 5 Decade
  Sex: Female

DRUGS (5)
  1. ABILIFY [Suspect]
     Indication: MAJOR DEPRESSION
     Route: 048
     Dates: start: 20081106
  2. CYMBALTA [Concomitant]
  3. ANTABUSE [Concomitant]
     Dates: start: 20090401
  4. DISULFIRAM [Concomitant]
  5. TRAZODONE HCL [Concomitant]

REACTIONS (3)
  - ASPARTATE AMINOTRANSFERASE INCREASED [None]
  - BLOOD ALKALINE PHOSPHATASE INCREASED [None]
  - PURPURA [None]
